FAERS Safety Report 6656810-3 (Version None)
Quarter: 2010Q1

REPORT INFORMATION
  Report Type: 
  Country: None (occurrence: None)
  Receive Date: 20100325
  Receipt Date: 20100313
  Transmission Date: 20100710
  Serious: Yes (Hospitalization)
  Sender: FDA-Public Use
  Company Number: 2010AP000505

PATIENT
  Age: 54 Year
  Sex: Female

DRUGS (4)
  1. CIPROFLOXACIN [Suspect]
     Indication: PYELONEPHRITIS
  2. CIPROFLOXACIN [Suspect]
     Indication: URINARY TRACT INFECTION
  3. LEVOFLOXACIN [Suspect]
     Indication: URINARY TRACT INFECTION
  4. CIPROFLOXACIN [Concomitant]

REACTIONS (5)
  - DRUG ERUPTION [None]
  - DRUG HYPERSENSITIVITY [None]
  - POST INFLAMMATORY PIGMENTATION CHANGE [None]
  - TYPE IV HYPERSENSITIVITY REACTION [None]
  - URINARY TRACT INFECTION [None]
